FAERS Safety Report 17157774 (Version 1)
Quarter: 2019Q4

REPORT INFORMATION
  Report Type: Spontaneous
  Country: US (occurrence: US)
  Receive Date: 20191213
  Receipt Date: 20191213
  Transmission Date: 20200122
  Serious: Yes (Other)
  Sender: FDA-Public Use
  Company Number: None

PATIENT
  Age: 38 Year
  Sex: Female
  Weight: 112.05 kg

DRUGS (8)
  1. TAYTULLA [Concomitant]
     Active Substance: ETHINYL ESTRADIOL\NORETHINDRONE ACETATE
  2. RESTASIS [Concomitant]
     Active Substance: CYCLOSPORINE
  3. OMEGA 3 FISH OIL [Concomitant]
     Active Substance: FISH OIL\OMEGA-3 FATTY ACIDS
  4. METFORMIN [Concomitant]
     Active Substance: METFORMIN HYDROCHLORIDE
  5. FLONASE [Suspect]
     Active Substance: FLUTICASONE PROPIONATE
     Indication: HYPERSENSITIVITY
     Dosage: ?          OTHER STRENGTH:MCG;QUANTITY:2 SPRAY(S);OTHER ROUTE:NOSE?
  6. LUVOX (GENERIC) [Concomitant]
  7. SAXENDA [Concomitant]
     Active Substance: LIRAGLUTIDE
  8. DAILY VITAMIN [Concomitant]
     Active Substance: VITAMINS

REACTIONS (3)
  - Cataract [None]
  - Visual impairment [None]
  - Dry eye [None]

NARRATIVE: CASE EVENT DATE: 20191209
